FAERS Safety Report 7894268 (Version 5)
Quarter: 2017Q3

REPORT INFORMATION
  Report Type: Report from Study
  Country: JP (occurrence: JP)
  Receive Date: 20110411
  Receipt Date: 20170711
  Transmission Date: 20171128
  Serious: Yes (Death)
  Sender: FDA-Public Use
  Company Number: JP-BAYER-2011-030297

PATIENT
  Age: 84 Year
  Sex: Male

DRUGS (5)
  1. ADONA [Concomitant]
     Active Substance: CARBAZOCHROME SODIUM SULFONATE
     Dosage: DAILY DOSE 100 MG
     Route: 042
     Dates: start: 20101230, end: 20101231
  2. CIPROFLOXACIN BETAIN [Suspect]
     Active Substance: CIPROFLOXACIN
     Indication: PNEUMONIA
     Dosage: 300 MG, BID
     Route: 041
     Dates: start: 20101229, end: 20101231
  3. TRANSAMIN [Concomitant]
     Active Substance: TRANEXAMIC ACID
     Dosage: DAILY DOSE 2 G
     Route: 042
     Dates: start: 20101230, end: 20101231
  4. AMINOACETIC ACID/CYSTEINE/GLYCYRRHIZIC ACID [Concomitant]
     Dosage: DAILY DOSE 40 ML
     Route: 042
     Dates: start: 20101227, end: 20101231
  5. MULTIVITAMIN [Concomitant]
     Active Substance: VITAMINS
     Dosage: DAILY DOSE 40 ML
     Route: 042
     Dates: start: 20101227, end: 20101231

REACTIONS (2)
  - Gastrointestinal haemorrhage [Fatal]
  - Lung neoplasm malignant [Fatal]

NARRATIVE: CASE EVENT DATE: 20101229
